FAERS Safety Report 7331855-9 (Version None)
Quarter: 2011Q1

REPORT INFORMATION
  Report Type: 
  Country: None (occurrence: None)
  Receive Date: 20110304
  Receipt Date: 20091021
  Transmission Date: 20110831
  Serious: Yes (Other)
  Sender: FDA-Public Use
  Company Number: US-PFIZER INC-2009286693

PATIENT
  Sex: Female

DRUGS (3)
  1. TOPAMAX [Suspect]
     Dosage: UNK
  2. PHENOBARBITAL TAB [Suspect]
     Dosage: UNK
  3. DILANTIN [Suspect]
     Indication: EPILEPSY
     Dosage: 360 MG, UNK

REACTIONS (1)
  - CONVULSION [None]
